FAERS Safety Report 8205088-8 (Version None)
Quarter: 2012Q1

REPORT INFORMATION
  Report Type: 
  Country: None (occurrence: None)
  Receive Date: 20120313
  Receipt Date: 20120301
  Transmission Date: 20120608
  Serious: Yes (Other)
  Sender: FDA-Public Use
  Company Number: JP-ROCHE-1023737

PATIENT
  Age: 76 Year
  Sex: Male

DRUGS (8)
  1. KENACORT-A OPHTHALMIC OINTMENT [Suspect]
     Dates: start: 20091117
  2. LUCENTIS [Suspect]
     Dates: start: 20100105
  3. TRIAMCINOLONE [Concomitant]
  4. LUCENTIS [Suspect]
     Indication: AGE-RELATED MACULAR DEGENERATION
     Route: 050
     Dates: start: 20090821
  5. LUCENTIS [Suspect]
     Dates: start: 20091117
  6. KENACORT-A OPHTHALMIC OINTMENT [Suspect]
     Dates: start: 20091013
  7. KENACORT-A OPHTHALMIC OINTMENT [Suspect]
     Indication: PRODUCT USED FOR UNKNOWN INDICATION
     Dates: start: 20090821
  8. LEVOFLOXACIN [Concomitant]

REACTIONS (2)
  - INTRAOCULAR PRESSURE INCREASED [None]
  - MYOCARDIAL INFARCTION [None]
